FAERS Safety Report 10646157 (Version 1)
Quarter: 2014Q4

REPORT INFORMATION
  Report Type: Spontaneous
  Country: US (occurrence: None)
  Receive Date: 20141205
  Receipt Date: 20141205
  Transmission Date: 20150529
  Serious: No
  Sender: FDA-Public Use
  Company Number: USA-2014111649

PATIENT
  Age: 37 Year
  Sex: Male

DRUGS (7)
  1. POMALYST [Suspect]
     Active Substance: POMALIDOMIDE
     Indication: PLASMA CELL MYELOMA
     Dosage: 4 MG, 1 IN 1 D, PO
     Route: 048
     Dates: start: 20131112
  2. GABAPENTIN (GABAPENTIN) (UNKNOWN) [Concomitant]
  3. DEXAMETHASONE (DEXAMETHASONE) (UNKNOWN) [Concomitant]
     Active Substance: DEXAMETHASONE
  4. OXYCONTIN (OXYCODONE HYDROCHLORIDE) (UNKNOWN) [Concomitant]
  5. PROAIR (UNKNOWN) [Concomitant]
  6. CLINDAMYCIN [Concomitant]
     Active Substance: CLINDAMYCIN\CLINDAMYCIN PHOSPHATE
  7. PROCHLORPERAZINE (PROCHLORPERAZINE) (UNKNOWN) [Concomitant]

REACTIONS (2)
  - Drug dose omission [None]
  - Drug ineffective [None]

NARRATIVE: CASE EVENT DATE: 2014
